FAERS Safety Report 18631373 (Version 1)
Quarter: 2020Q4

REPORT INFORMATION
  Report Type: Spontaneous
  Country: US (occurrence: US)
  Receive Date: 20201217
  Receipt Date: 20201217
  Transmission Date: 20210114
  Serious: No
  Sender: FDA-Public Use
  Company Number: US-ENDO PHARMACEUTICALS INC-2020-004123

PATIENT
  Age: 56 Year
  Sex: Male

DRUGS (5)
  1. XIAFLEX [Suspect]
     Active Substance: COLLAGENASE CLOSTRIDIUM HISTOLYTICUM
     Dosage: 0.9 MG, UNKNOWN CYCLE 2, INJECTION  2)
     Route: 065
     Dates: start: 20200529
  2. XIAFLEX [Suspect]
     Active Substance: COLLAGENASE CLOSTRIDIUM HISTOLYTICUM
     Dosage: 0.9 MG, UNKNOWN (CYCLE 1, INJECTION 1)
     Route: 065
     Dates: start: 20200206
  3. XIAFLEX [Suspect]
     Active Substance: COLLAGENASE CLOSTRIDIUM HISTOLYTICUM
     Dosage: 0.9 MG, UNKNOWN CYCLE 2, INJECTION 1 )
     Route: 065
     Dates: start: 2020
  4. XIAFLEX [Suspect]
     Active Substance: COLLAGENASE CLOSTRIDIUM HISTOLYTICUM
     Dosage: 0.9 MG, UNKNOWN (CYCLE 1, INJECTION 2)
     Route: 065
  5. XIAFLEX [Suspect]
     Active Substance: COLLAGENASE CLOSTRIDIUM HISTOLYTICUM
     Indication: PEYRONIE^S DISEASE
     Dosage: 0.9 MG, UNKNOWN (CYCLE 3, INJECTION 1 + 2)
     Route: 065

REACTIONS (6)
  - Injection site bruising [Unknown]
  - Pain [Unknown]
  - Swelling [Unknown]
  - Discomfort [Unknown]
  - Penile contusion [Unknown]
  - Penile pain [Unknown]

NARRATIVE: CASE EVENT DATE: 2020
